FAERS Safety Report 10608515 (Version 1)
Quarter: 2014Q4

REPORT INFORMATION
  Report Type: Spontaneous
  Country: US (occurrence: US)
  Receive Date: 20141125
  Receipt Date: 20141125
  Transmission Date: 20150529
  Serious: No
  Sender: FDA-Public Use
  Company Number: US-PFIZER INC-2014323487

PATIENT
  Age: 34 Year
  Sex: Male

DRUGS (1)
  1. NEURONTIN [Suspect]
     Active Substance: GABAPENTIN
     Dosage: 2 / 2X DAILY
     Route: 048
     Dates: start: 2012, end: 2014

REACTIONS (1)
  - Oedema [Unknown]
